FAERS Safety Report 8214394-2 (Version None)
Quarter: 2012Q1

REPORT INFORMATION
  Report Type: 
  Country: None (occurrence: None)
  Receive Date: 20120316
  Receipt Date: 20120306
  Transmission Date: 20120608
  Serious: Yes (Other)
  Sender: FDA-Public Use
  Company Number: US-JNJFOC-20120305929

PATIENT

DRUGS (2)
  1. METHYLPHENIDATE HCL [Suspect]
     Route: 048
  2. METHYLPHENIDATE HCL [Suspect]
     Indication: ATTENTION DEFICIT/HYPERACTIVITY DISORDER
     Route: 048

REACTIONS (6)
  - GASTROINTESTINAL DISORDER [None]
  - MENTAL DISORDER [None]
  - CARDIAC DISORDER [None]
  - METABOLIC DISORDER [None]
  - INVESTIGATION ABNORMAL [None]
  - NERVOUS SYSTEM DISORDER [None]
